FAERS Safety Report 9913215 (Version 1)
Quarter: 2014Q1

REPORT INFORMATION
  Report Type: Spontaneous
  Country: US (occurrence: US)
  Receive Date: 20140220
  Receipt Date: 20140220
  Transmission Date: 20141002
  Serious: No
  Sender: FDA-Public Use
  Company Number: US-BAYER-2014-019006

PATIENT
  Age: 57 Year
  Sex: Female

DRUGS (1)
  1. ALEVE CAPLET [Suspect]
     Indication: ANALGESIC THERAPY
     Dosage: 1 DF, PRN
     Route: 048
     Dates: start: 2009, end: 20140131

REACTIONS (2)
  - Abdominal discomfort [Recovered/Resolved]
  - Abdominal discomfort [Not Recovered/Not Resolved]
